FAERS Safety Report 18009169 (Version 1)
Quarter: 2020Q3

REPORT INFORMATION
  Report Type: Spontaneous
  Country: US (occurrence: US)
  Receive Date: 20200710
  Receipt Date: 20200710
  Transmission Date: 20201103
  Serious: Yes (Hospitalization, Other)
  Sender: FDA-Public Use
  Company Number: US-SAOL THERAPEUTICS-2020SAO00153

PATIENT
  Age: 41 Year
  Sex: Male
  Weight: 68.03 kg

DRUGS (2)
  1. LIORESAL [Suspect]
     Active Substance: BACLOFEN
     Dosage: 3 ?G, \DAY
     Route: 037
  2. LIORESAL [Suspect]
     Active Substance: BACLOFEN
     Indication: MUSCLE SPASTICITY
     Dosage: 30 ?G/DAY
     Route: 037

REACTIONS (6)
  - Device dislocation [Unknown]
  - Hypotonia [Recovered/Resolved]
  - Overdose [Recovered/Resolved]
  - Gait disturbance [Recovered/Resolved]
  - Paraplegia [Recovered/Resolved]
  - Skin erosion [Unknown]

NARRATIVE: CASE EVENT DATE: 20200520
